FAERS Safety Report 9450074 (Version 1)
Quarter: 2013Q3

REPORT INFORMATION
  Report Type: Spontaneous
  Country: US (occurrence: US)
  Receive Date: 20130809
  Receipt Date: 20130809
  Transmission Date: 20140515
  Serious: No
  Sender: FDA-Public Use
  Company Number: US-AMGEN-USASP2013011530

PATIENT
  Age: 73 Year
  Sex: Female

DRUGS (1)
  1. NPLATE [Suspect]
     Indication: THROMBOCYTOPENIC PURPURA
     Dosage: UNK
     Dates: start: 2009

REACTIONS (2)
  - Fall [Unknown]
  - Fatigue [Unknown]
